FAERS Safety Report 18197425 (Version 1)
Quarter: 2020Q3

REPORT INFORMATION
  Report Type: Report from Study
  Country: US (occurrence: US)
  Receive Date: 20200826
  Receipt Date: 20200826
  Transmission Date: 20201103
  Serious: Yes (Life-Threatening, Other)
  Sender: FDA-Public Use
  Company Number: US-JNJFOC-20200836591

PATIENT

DRUGS (2)
  1. HALDOL [Suspect]
     Active Substance: HALOPERIDOL
     Indication: AGITATION
     Dosage: DOSE ESCALATION AT 2 MG EVERY 4 H/ COMBINED HALOPERIDOL AT 1 MG AND CHLORPROMAZINE AT 12 5 MG EVERY
     Route: 042
  2. CHLORPROMAZINE. [Suspect]
     Active Substance: CHLORPROMAZINE
     Indication: AGITATION
     Route: 042

REACTIONS (7)
  - Incorrect route of product administration [Unknown]
  - Hypotension [Unknown]
  - Sinus tachycardia [Unknown]
  - Hypoxia [Unknown]
  - Apnoea [Unknown]
  - Akathisia [Unknown]
  - Off label use [Unknown]
